FAERS Safety Report 6215824-8 (Version None)
Quarter: 2009Q2

REPORT INFORMATION
  Report Type: 
  Country: None (occurrence: None)
  Receive Date: 20090603
  Receipt Date: 20090521
  Transmission Date: 20091009
  Serious: Yes (Life-Threatening, Hospitalization)
  Sender: FDA-Public Use
  Company Number: 200905AGG00878

PATIENT
  Age: 66 Year
  Sex: Female

DRUGS (6)
  1. AGGRASTAT [Suspect]
     Dosage: INTRAVENOUS DRIP, 1 HOUR UNTIL
     Route: 041
  2. CORVASAL [Concomitant]
  3. ASPIRIN [Concomitant]
  4. BUMEX [Concomitant]
  5. HEPARIN [Concomitant]
  6. SERETIDE [Concomitant]

REACTIONS (7)
  - CHEST PAIN [None]
  - CHILLS [None]
  - PETECHIAE [None]
  - PLATELET COUNT DECREASED [None]
  - PYREXIA [None]
  - TACHYCARDIA [None]
  - UNEVALUABLE EVENT [None]
